FAERS Safety Report 8558707-0 (Version None)
Quarter: 2012Q3

REPORT INFORMATION
  Report Type: 
  Country: None (occurrence: None)
  Receive Date: 20120801
  Receipt Date: 20120723
  Transmission Date: 20120928
  Serious: Yes (Other)
  Sender: FDA-Public Use
  Company Number: US-009507513-1207USA011233

PATIENT

DRUGS (6)
  1. OMEPRAZOLE [Concomitant]
  2. CHONDROITIN SULFATE SODIUM (+) GLUCOSAMINE SULFATE [Concomitant]
  3. ZOCOR [Suspect]
     Dosage: 1 DF, QD
  4. METOPROLOL TARTRATE [Concomitant]
  5. LIPITOR [Suspect]
     Dosage: 40 MG, UNK
  6. LIPITOR [Suspect]
     Dosage: 20 MG, UNK

REACTIONS (5)
  - ABASIA [None]
  - ASPARTATE AMINOTRANSFERASE INCREASED [None]
  - ALANINE AMINOTRANSFERASE INCREASED [None]
  - ANAEMIA HAEMOLYTIC AUTOIMMUNE [None]
  - MUSCLE SPASMS [None]
